FAERS Safety Report 4854764-3 (Version None)
Quarter: 2005Q4

REPORT INFORMATION
  Report Type: 
  Country: None (occurrence: None)
  Receive Date: 20051215
  Receipt Date: 20051213
  Transmission Date: 20060501
  Serious: Yes (Life-Threatening)
  Sender: FDA-Public Use
  Company Number: NL-GLAXOSMITHKLINE-B0403593A

PATIENT
  Age: 34 Year
  Sex: Female

DRUGS (1)
  1. PAROXETINE HYDROCHLORIDE [Suspect]
     Dosage: 30MG PER DAY
     Dates: start: 20021116

REACTIONS (2)
  - PANIC ATTACK [None]
  - SUICIDAL IDEATION [None]
